FAERS Safety Report 6445015-7 (Version None)
Quarter: 2009Q4

REPORT INFORMATION
  Report Type: 
  Country: None (occurrence: None)
  Receive Date: 20091118
  Receipt Date: 20091112
  Transmission Date: 20100525
  Serious: Yes (Other)
  Sender: FDA-Public Use
  Company Number: GB-TEVA-215165ISR

PATIENT
  Age: 87 Year
  Sex: Male
  Weight: 61 kg

DRUGS (1)
  1. GABAPENTIN [Suspect]
     Indication: NEURALGIA
     Dates: start: 20080827, end: 20090701

REACTIONS (18)
  - ACTINIC KERATOSIS [None]
  - ATRIAL TACHYCARDIA [None]
  - BASAL CELL CARCINOMA [None]
  - BLADDER OBSTRUCTION [None]
  - CONJUNCTIVITIS [None]
  - DRUG EFFECT DECREASED [None]
  - FALL [None]
  - H1N1 INFLUENZA [None]
  - LIP DISORDER [None]
  - LIPOMA [None]
  - LOSS OF CONSCIOUSNESS [None]
  - MELANOCYTIC NAEVUS [None]
  - MOUTH INJURY [None]
  - PAIN IN EXTREMITY [None]
  - POROCARCINOMA [None]
  - SUPRAVENTRICULAR EXTRASYSTOLES [None]
  - SYNCOPE [None]
  - VENTRICULAR EXTRASYSTOLES [None]
